FAERS Safety Report 6609507-X (Version None)
Quarter: 2010Q1

REPORT INFORMATION
  Report Type: 
  Country: None (occurrence: None)
  Receive Date: 20100224
  Receipt Date: 20100209
  Transmission Date: 20100710
  Serious: Yes (Death)
  Sender: FDA-Public Use
  Company Number: 007003

PATIENT
  Age: 74 Year
  Sex: Male

DRUGS (8)
  1. PLETAL [Suspect]
     Indication: ARTERIOSCLEROSIS OBLITERANS
     Dosage: 100 MG, BID ORAL
     Route: 048
     Dates: start: 20090128, end: 20090618
  2. EPADEL (ETHYL ICOSAPENTATE) [Concomitant]
  3. ONE-ALPHA (ALFACALCIDOL) [Concomitant]
  4. SHIGMABITAN (BENFOTIAMINE_B6_B12 COMBINED DRUG) [Concomitant]
  5. BUP-4 (PROPIVERINE HYDROCHLORIDE) [Concomitant]
  6. LENDORM [Concomitant]
  7. OPALMON (LIMAPROST) [Concomitant]
  8. BONALON (ALENDRONATE SODIUM HYDRATE) [Concomitant]

REACTIONS (3)
  - CARDIAC FAILURE ACUTE [None]
  - CARDIO-RESPIRATORY ARREST [None]
  - OEDEMA [None]
